FAERS Safety Report 7077341 (Version 2)
Quarter: 2014Q3

REPORT INFORMATION
  Report Type: Spontaneous
  Country: US (occurrence: None)
  Receive Date: 20090803
  Receipt Date: 20140701
  Transmission Date: 20150326
  Serious: Yes (Hospitalization, Other)
  Sender: FDA-Public Use
  Company Number: 2009S1005856

PATIENT
  Age: 60 Year
  Sex: Female

DRUGS (14)
  1. PHOSPHO-SODA [Suspect]
     Active Substance: SODIUM PHOSPHATE, DIBASIC\SODIUM PHOSPHATE, MONOBASIC
     Indication: COLONOSCOPY
     Dosage: 90 ML, 2 IN 1 DAYS, ORAL
     Route: 048
     Dates: start: 20060830, end: 20060831
  2. LEVOTHYROXIN (LEVOTHYROXINE SODIUM) [Concomitant]
  3. DOXAZOSIN [Concomitant]
     Active Substance: DOXAZOSIN\DOXAZOSIN MESYLATE
  4. LISINOPRIL (LISINOPRIL) [Concomitant]
     Active Substance: LISINOPRIL
  5. EFFEXOR [Concomitant]
     Active Substance: VENLAFAXINE HYDROCHLORIDE
  6. NAPROXEN (NAPROXEN) [Concomitant]
     Active Substance: NAPROXEN
  7. DULCOLAX (BISACODYL) [Concomitant]
     Active Substance: BISACODYL
  8. METFORMIN [Concomitant]
     Active Substance: METFORMIN HYDROCHLORIDE
  9. MAGNESIUM CITRATE (MAGNESIUM CITRATE) [Concomitant]
     Active Substance: MAGNESIUM CITRATE
  10. GLIPIZIDE (GLIPIZIDE) [Concomitant]
     Active Substance: GLIPIZIDE
  11. SEPTRA (SULFAMETHOXAZOLE, TRIMETHOPRIM) [Concomitant]
  12. ZOCOR [Concomitant]
     Active Substance: SIMVASTATIN
  13. FLEET NOS [Suspect]
     Active Substance: BISACODYL OR GLYCERIN OR MINERAL OIL OR SODIUM PHOSPHATE, DIBASIC\SODIUM PHOSPHATE, MONOBASIC
     Indication: CONSTIPATION
     Route: 054
     Dates: start: 20060805, end: 20060805
  14. HYDROCHLOROTHIAZIDE (HYDROCHLOROTHIAZIDE) [Concomitant]
     Active Substance: HYDROCHLOROTHIAZIDE

REACTIONS (19)
  - Nephrogenic anaemia [None]
  - Influenza like illness [None]
  - Fatigue [None]
  - Nausea [None]
  - Presyncope [None]
  - Malaise [None]
  - Vomiting [None]
  - Diarrhoea [None]
  - Hypotension [None]
  - Fall [None]
  - Renal failure acute [None]
  - Abdominal pain [None]
  - Limb injury [None]
  - Anxiety [None]
  - Dizziness [None]
  - Back pain [None]
  - Dehydration [None]
  - Myofascial pain syndrome [None]
  - Anaemia [None]

NARRATIVE: CASE EVENT DATE: 20060908
